FAERS Safety Report 15629007 (Version 2)
Quarter: 2018Q4

REPORT INFORMATION
  Report Type: Spontaneous
  Country: IT (occurrence: IT)
  Receive Date: 20181116
  Receipt Date: 20181215
  Transmission Date: 20190205
  Serious: Yes (Other)
  Sender: FDA-Public Use
  Company Number: IT-TEVA-2018-IT-975073

PATIENT
  Age: 74 Year
  Sex: Female

DRUGS (6)
  1. OMEPRAZEN [Concomitant]
     Active Substance: OMEPRAZOLE
     Route: 065
  2. ESCITALOPRAM [Suspect]
     Active Substance: ESCITALOPRAM OXALATE
     Indication: ANXIETY
     Route: 048
     Dates: start: 20180101, end: 20180801
  3. PLAVIX [Concomitant]
     Active Substance: CLOPIDOGREL BISULFATE
     Route: 065
  4. MEDROL [Concomitant]
     Active Substance: METHYLPREDNISOLONE
     Route: 065
  5. DESLORATADINE. [Concomitant]
     Active Substance: DESLORATADINE
     Route: 065
  6. PREGABALIN. [Concomitant]
     Active Substance: PREGABALIN
     Route: 065

REACTIONS (3)
  - Hyponatraemia [Recovering/Resolving]
  - Hyperpyrexia [Recovering/Resolving]
  - Asthenia [Recovering/Resolving]

NARRATIVE: CASE EVENT DATE: 20180802
